FAERS Safety Report 23500329 (Version 3)
Quarter: 2024Q1

REPORT INFORMATION
  Report Type: Spontaneous
  Country: BG (occurrence: BG)
  Receive Date: 20240208
  Receipt Date: 20240223
  Transmission Date: 20240410
  Serious: Yes (Hospitalization, Other)
  Sender: FDA-Public Use
  Company Number: BG-Accord-404547

PATIENT
  Age: 74 Year
  Sex: Male

DRUGS (4)
  1. ROSUVASTATIN CALCIUM [Suspect]
     Active Substance: ROSUVASTATIN CALCIUM
     Indication: Hypertension
     Dosage: 1X20MG
  2. SPIRONOLACTONE [Suspect]
     Active Substance: SPIRONOLACTONE
     Indication: Hypertension
     Dosage: HALF TABLET OF 50MG
  3. NEBIVOLOL [Suspect]
     Active Substance: NEBIVOLOL
     Indication: Hypertension
     Dosage: 2X5MG
  4. ZOFENOPRIL CALCIUM [Suspect]
     Active Substance: ZOFENOPRIL CALCIUM
     Indication: Hypertension
     Dosage: 2X30MG

REACTIONS (3)
  - Malignant melanoma [Unknown]
  - Manufacturing materials contamination [Recovering/Resolving]
  - Dysplastic naevus [Unknown]
